FAERS Safety Report 13144633 (Version 1)
Quarter: 2017Q1

REPORT INFORMATION
  Report Type: Report from Study
  Country: ES (occurrence: ES)
  Receive Date: 20170124
  Receipt Date: 20170124
  Transmission Date: 20170428
  Serious: Yes (Hospitalization, Other)
  Sender: FDA-Public Use
  Company Number: ES-BAXTER-2017BAX001719

PATIENT
  Age: 24 Year
  Sex: Female

DRUGS (6)
  1. PLASMA-LYTE 148 [Suspect]
     Active Substance: MAGNESIUM CHLORIDE\POTASSIUM CHLORIDE\SODIUM ACETATE\SODIUM CHLORIDE\SODIUM GLUCONATE
     Indication: PRODUCT USED FOR UNKNOWN INDICATION
     Dosage: 40 ML/KG/24
     Route: 042
     Dates: start: 20150725, end: 20150725
  2. SYNTOCINON [Suspect]
     Active Substance: OXYTOCIN
     Indication: LABOUR INDUCTION
     Dosage: 3 IU + 3IU, 1 AMPOULE OF 1 ML
     Route: 042
     Dates: start: 20150725, end: 20150725
  3. LEVOBUPIVACAINA [Suspect]
     Active Substance: LEVOBUPIVACAINE
     Indication: PRODUCT USED FOR UNKNOWN INDICATION
     Dosage: 0.25%
     Route: 042
     Dates: start: 20150725, end: 20150725
  4. CEFAZOLINA [Suspect]
     Active Substance: CEFAZOLIN SODIUM
     Indication: PROPHYLAXIS
     Route: 042
     Dates: start: 20150725, end: 20150725
  5. PANTOPRAZOL 40 [Suspect]
     Active Substance: PANTOPRAZOLE SODIUM
     Indication: PROPHYLAXIS
     Dosage: 1 AMPOULE
     Route: 042
     Dates: start: 20150725
  6. FENTANILO [Suspect]
     Active Substance: FENTANYL
     Indication: PRODUCT USED FOR UNKNOWN INDICATION
     Route: 042
     Dates: start: 20150725, end: 20150725

REACTIONS (4)
  - Labour complication [Recovered/Resolved]
  - Hypertensive crisis [Recovered/Resolved]
  - Exposure during pregnancy [Recovered/Resolved]
  - Hepatic ischaemia [Recovered/Resolved]

NARRATIVE: CASE EVENT DATE: 20150725
